FAERS Safety Report 4700365-7 (Version None)
Quarter: 2005Q2

REPORT INFORMATION
  Report Type: 
  Country: None (occurrence: None)
  Receive Date: 20050209
  Receipt Date: 20050209
  Transmission Date: 20051028
  Serious: No
  Sender: FDA-Public Use
  Company Number: None

PATIENT
  Age: 26 Year
  Sex: Female
  Weight: 107.9561 kg

DRUGS (2)
  1. COUMADIN [Suspect]
     Indication: DEEP VEIN THROMBOSIS
     Dosage: ORALLY
     Route: 048
  2. COUMADIN [Suspect]

REACTIONS (1)
  - INTERNATIONAL NORMALISED RATIO FLUCTUATION [None]
